FAERS Safety Report 6786962-6 (Version None)
Quarter: 2010Q2

REPORT INFORMATION
  Report Type: 
  Country: None (occurrence: None)
  Receive Date: 20100623
  Receipt Date: 20100615
  Transmission Date: 20101027
  Serious: Yes (Hospitalization)
  Sender: FDA-Public Use
  Company Number: FR-AMGEN-QUU418397

PATIENT
  Sex: Male

DRUGS (10)
  1. ARANESP [Suspect]
     Indication: RENAL FAILURE CHRONIC
     Route: 058
     Dates: start: 20100101, end: 20100509
  2. CELLCEPT [Suspect]
  3. RANITIDINE HCL [Suspect]
     Dates: start: 20100101, end: 20100509
  4. PREVISCAN [Concomitant]
  5. AMLODIPINE [Concomitant]
  6. APROVEL [Concomitant]
  7. STABLON [Concomitant]
  8. DAFALGAN [Concomitant]
  9. PREDNISONE [Concomitant]
  10. NEBIVOLOL HCL [Concomitant]

REACTIONS (4)
  - AGRANULOCYTOSIS [None]
  - CONFUSIONAL STATE [None]
  - PYREXIA [None]
  - URINARY TRACT INFECTION [None]
